FAERS Safety Report 10311439 (Version 1)
Quarter: 2014Q3

REPORT INFORMATION
  Report Type: Spontaneous
  Country: US (occurrence: US)
  Receive Date: 20140717
  Receipt Date: 20140717
  Transmission Date: 20150326
  Serious: Yes (Other)
  Sender: FDA-Public Use
  Company Number: US-FRI-1000069076

PATIENT
  Age: 54 Year
  Sex: Female

DRUGS (1)
  1. SAPHRIS [Suspect]
     Active Substance: ASENAPINE MALEATE
     Indication: DEPRESSION
     Dosage: 5 MG QHS
     Route: 060
     Dates: start: 20120905, end: 20121016

REACTIONS (4)
  - Loss of consciousness [Recovered/Resolved]
  - Dizziness [Recovered/Resolved]
  - Off label use [Recovered/Resolved]
  - Head injury [Recovered/Resolved]

NARRATIVE: CASE EVENT DATE: 20120905
